FAERS Safety Report 4965235-8 (Version None)
Quarter: 2006Q1

REPORT INFORMATION
  Report Type: 
  Country: None (occurrence: None)
  Receive Date: 20060130
  Receipt Date: 20050831
  Transmission Date: 20060701
  Serious: No
  Sender: FDA-Public Use
  Company Number: COT_0278_2005

PATIENT
  Age: 64 Year
  Sex: Female
  Weight: 83.9154 kg

DRUGS (8)
  1. VENTAVIS [Suspect]
     Indication: PULMONARY HYPERTENSION
     Dosage: 2.5 MCG ONCE IH
     Route: 055
     Dates: start: 20050721, end: 20050721
  2. VENTAVIS [Suspect]
     Indication: PULMONARY HYPERTENSION
     Dosage: 5 MCG 6 TO 9 X /DAY IH
     Route: 055
     Dates: start: 20050721
  3. VENTAVIS [Suspect]
     Indication: PULMONARY HYPERTENSION
     Dosage: 5 MCG 6 TO 9X/DAY IH
     Route: 055
     Dates: start: 20050721
  4. BOSENTAN [Concomitant]
  5. WARFARIN SODIUM [Concomitant]
  6. LISINOPRIL [Concomitant]
  7. ALPRAZOLAM [Concomitant]
  8. MULTI-VITAMIN [Concomitant]

REACTIONS (2)
  - HEADACHE [None]
  - TREMOR [None]
